FAERS Safety Report 7197150-6 (Version None)
Quarter: 2010Q4

REPORT INFORMATION
  Report Type: 
  Country: None (occurrence: None)
  Receive Date: 20101224
  Receipt Date: 20101220
  Transmission Date: 20110411
  Serious: Yes (Death)
  Sender: FDA-Public Use
  Company Number: PHHY2010US87695

PATIENT
  Age: 41 Year
  Sex: Female

DRUGS (1)
  1. FANAPT [Suspect]
     Dosage: 10 MG, BID
     Route: 048

REACTIONS (1)
  - DEATH [None]
